FAERS Safety Report 4302730-9 (Version None)
Quarter: 2004Q1

REPORT INFORMATION
  Report Type: 
  Country: None (occurrence: None)
  Receive Date: 20040224
  Receipt Date: 19890823
  Transmission Date: 20041129
  Serious: Yes (Life-Threatening, Hospitalization, Disabling)
  Sender: FDA-Public Use
  Company Number: USA/89/00286/PLO

PATIENT
  Age: 31 Year
  Sex: Female

DRUGS (13)
  1. PARLODEL [Suspect]
     Indication: GALACTORRHOEA
     Route: 048
     Dates: start: 19880101, end: 19880101
  2. PARLODEL [Suspect]
     Route: 048
     Dates: start: 19881128, end: 19881201
  3. EPIDURAL ANESTHESIA [Concomitant]
     Indication: NORMAL DELIVERY
     Dosage: UNKNOWN
  4. XYLOCAINE [Concomitant]
     Indication: NORMAL DELIVERY
     Dosage: UNKNOWN
  5. PITOCIN [Concomitant]
  6. PHENERGAN [Concomitant]
     Indication: VOMITING
  7. DEMEROL [Concomitant]
     Indication: NAUSEA
  8. DARVOCET-N 100 [Concomitant]
     Indication: GENERAL SYMPTOM
  9. SURFAK [Concomitant]
  10. TYLOX [Concomitant]
     Indication: GENERAL SYMPTOM
  11. TYLENOL (CAPLET) [Concomitant]
  12. LACTATED RINGER'S [Concomitant]
  13. MARCAINE [Concomitant]
     Dosage: 4-6 ML/0.25-0.37%

REACTIONS (1)
  - UNEVALUABLE EVENT [None]
